FAERS Safety Report 20307676 (Version 1)
Quarter: 2022Q1

REPORT INFORMATION
  Report Type: Spontaneous
  Country: US (occurrence: US)
  Receive Date: 20220107
  Receipt Date: 20220107
  Transmission Date: 20220423
  Serious: No
  Sender: FDA-Public Use
  Company Number: US-ELI_LILLY_AND_COMPANY-US202201001770

PATIENT
  Sex: Male

DRUGS (1)
  1. BASAGLAR [Suspect]
     Active Substance: INSULIN GLARGINE
     Indication: Product used for unknown indication
     Dosage: 48 U, DAILY
     Route: 065
     Dates: start: 2020

REACTIONS (3)
  - Blood glucose increased [Unknown]
  - Injection site extravasation [Unknown]
  - Product dose omission issue [Unknown]
